FAERS Safety Report 9465015 (Version 2)
Quarter: 2013Q3

REPORT INFORMATION
  Report Type: Spontaneous
  Country: US (occurrence: US)
  Receive Date: 20130819
  Receipt Date: 20130905
  Transmission Date: 20140515
  Serious: Yes (Death)
  Sender: FDA-Public Use
  Company Number: US-BAYER-2013-097936

PATIENT
  Age: 16 Year
  Sex: Female

DRUGS (1)
  1. BACTINE PAIN RELIEVING CLEANSING ANESTHETIC SPRAY [Suspect]
     Dosage: UNK
     Route: 048
     Dates: start: 2008, end: 2008

REACTIONS (2)
  - Intentional overdose [Fatal]
  - Completed suicide [Fatal]
